FAERS Safety Report 22212005 (Version 2)
Quarter: 2023Q2

REPORT INFORMATION
  Report Type: Spontaneous
  Country: US (occurrence: US)
  Receive Date: 20230414
  Receipt Date: 20230417
  Transmission Date: 20230722
  Serious: Yes (Other)
  Sender: FDA-Public Use
  Company Number: US-PFIZER INC-202300154206

PATIENT
  Age: 73 Year
  Sex: Female
  Weight: 104.33 kg

DRUGS (17)
  1. PAXLOVID [Suspect]
     Active Substance: NIRMATRELVIR\RITONAVIR
     Indication: COVID-19 treatment
     Dosage: [PF-07321332 300 MG]/[RITONAVIR 100 MG]; 2X/DAY
     Dates: start: 20230405, end: 20230410
  2. ATORVASTATIN CALCIUM [Suspect]
     Active Substance: ATORVASTATIN CALCIUM
     Indication: Blood triglycerides
     Dosage: 20 MG, 1X/DAY (20MG TABLETS, 1 TABLET BY MOUTH, NIGHTLY, AT BEDTIME)
     Route: 048
     Dates: end: 20230405
  3. PREGABALIN [Concomitant]
     Active Substance: PREGABALIN
     Indication: Neuralgia
     Dosage: 100 MG, AS NEEDED (100MG 1 AT BREAKFAST, 1 AT DINNER, 1 AT BEDTIME, IF NEEDED)
  4. PREGABALIN [Concomitant]
     Active Substance: PREGABALIN
     Indication: Neuropathy peripheral
  5. VENLAFAXINE HCL [Concomitant]
     Active Substance: VENLAFAXINE HYDROCHLORIDE
     Indication: Depression
     Dosage: 37.5 MG, 1X/DAY
     Route: 048
  6. VENLAFAXINE HCL [Concomitant]
     Active Substance: VENLAFAXINE HYDROCHLORIDE
     Dosage: 37.5 MG, 2X/DAY
  7. BUSPIRONE [Concomitant]
     Active Substance: BUSPIRONE HYDROCHLORIDE
     Indication: Antidepressant therapy
     Dosage: 30 MG, 2X/DAY (ONCE FOR BREAKFAST, ONCE FOR DINNER)
  8. FUROSEMIDE [Concomitant]
     Active Substance: FUROSEMIDE
     Indication: Oedema peripheral
     Dosage: 20 MG, 2X/DAY (20MG TAB HIKM, ONE TABLET BY MOUTH TWICE DAILY)
     Route: 048
  9. TRULICITY [Concomitant]
     Active Substance: DULAGLUTIDE
     Indication: Diabetes mellitus
     Dosage: UNK, WEEKLY (3MG/0.5MG INJLILL, TAKE EVERY WEDNESDAY MORNING)
  10. TRESIBA [Concomitant]
     Active Substance: INSULIN DEGLUDEC
     Indication: Diabetes mellitus
     Dosage: 36 IU, DAILY (200 UNITS/ML INJNOVO, TAKE 36 UNITS EVERY NIGHT BEFORE DINNER)
  11. POTASSIUM CHLORIDE [Concomitant]
     Active Substance: POTASSIUM CHLORIDE
     Dosage: 10 MEQ, 1X/DAY (1 AT BREAKFAST, CRYS ER 10 MEQ TAB AMNE)
  12. ROPINIROLE HYDROCHLORIDE [Concomitant]
     Active Substance: ROPINIROLE HYDROCHLORIDE
     Indication: Restless legs syndrome
     Dosage: 5 MG, 2X/DAY (5MG TAB, 1 PILL AT DINNER, 1 PILL AT BEDTIME)
  13. METOPROLOL TARTRATE [Concomitant]
     Active Substance: METOPROLOL TARTRATE
     Indication: Blood pressure abnormal
     Dosage: 100 MG, 2X/DAY (1 AT BREAKFAST, 1 AT DINNER)
  14. FAMOTIDINE [Concomitant]
     Active Substance: FAMOTIDINE
     Indication: Gastrooesophageal reflux disease
     Dosage: 20 MG, 2X/DAY (20MG TAB TEVA, 1 AT BREAKFAST, 1 AT DINNER)
  15. METOCLOPRAMIDE HYDROCHLORIDE [Concomitant]
     Active Substance: METOCLOPRAMIDE HYDROCHLORIDE
     Indication: Nausea
     Dosage: 5 MG, AS NEEDED
  16. TRAMADOL [Concomitant]
     Active Substance: TRAMADOL
     Indication: Back pain
     Dosage: 50 MG, AS NEEDED (TAKES NOT MORE THAN 2 A DAY, NO MORE THAN 2 DAYS IN A ROW)
  17. TIZANIDINE HYDROCHLORIDE [Concomitant]
     Active Substance: TIZANIDINE HYDROCHLORIDE
     Indication: Muscle relaxant therapy
     Dosage: 20 MG, AS NEEDED (TAKE 1 OR 2 ONLY AS NEEDED AS MUSCLE RELAXANT, FOR BACK)

REACTIONS (9)
  - Hallucination [Unknown]
  - Nightmare [Not Recovered/Not Resolved]
  - Abnormal dreams [Unknown]
  - Insomnia [Unknown]
  - Somatic dysfunction [Unknown]
  - Asthenia [Unknown]
  - Pain [Not Recovered/Not Resolved]
  - Vision blurred [Unknown]
  - Therapeutic product effect incomplete [Unknown]

NARRATIVE: CASE EVENT DATE: 20230405
